FAERS Safety Report 5776827-0 (Version None)
Quarter: 2008Q2

REPORT INFORMATION
  Report Type: 
  Country: None (occurrence: None)
  Receive Date: 20080618
  Receipt Date: 20080612
  Transmission Date: 20081010
  Serious: No
  Sender: FDA-Public Use
  Company Number: APP200800495

PATIENT
  Age: 56 Year
  Sex: Male
  Weight: 79.3795 kg

DRUGS (2)
  1. HEPARIN SODIUM INJECTION [Suspect]
     Indication: CYSTITIS INTERSTITIAL
     Dosage: INTRAVESICAL
     Route: 043
     Dates: start: 20080501
  2. PROSED DS [Concomitant]

REACTIONS (3)
  - DRUG EFFECT DECREASED [None]
  - INSTILLATION SITE IRRITATION [None]
  - URINARY TRACT INFECTION [None]
